FAERS Safety Report 16344477 (Version 1)
Quarter: 2019Q2

REPORT INFORMATION
  Report Type: Spontaneous
  Country: US (occurrence: US)
  Receive Date: 20190522
  Receipt Date: 20190522
  Transmission Date: 20190711
  Serious: Yes (Other)
  Sender: FDA-Public Use
  Company Number: US-ELI_LILLY_AND_COMPANY-US201905008470

PATIENT
  Age: 63 Year
  Sex: Female

DRUGS (4)
  1. PRILOSEC [Concomitant]
     Active Substance: OMEPRAZOLE MAGNESIUM
     Indication: PRODUCT USED FOR UNKNOWN INDICATION
  2. FLUOXETINE HYDROCHLORIDE 20MG [Suspect]
     Active Substance: FLUOXETINE HYDROCHLORIDE
     Indication: DEPRESSION
     Dosage: 20 MG, DAILY
     Route: 065
     Dates: start: 2001
  3. AMITRIPTYLINE [Concomitant]
     Active Substance: AMITRIPTYLINE
     Indication: MIGRAINE
     Dosage: 10 MG, UNKNOWN
     Route: 065
  4. PROZAC [Suspect]
     Active Substance: FLUOXETINE HYDROCHLORIDE
     Indication: DEPRESSION
     Dosage: 20 MG, DAILY
     Route: 065
     Dates: start: 1989, end: 2001

REACTIONS (15)
  - Myelitis [Unknown]
  - Blood phosphorus decreased [Unknown]
  - Abdominal adhesions [Unknown]
  - Cataract [Unknown]
  - Sepsis [Unknown]
  - Migraine [Unknown]
  - Irritability [Unknown]
  - Nightmare [Unknown]
  - Abnormal dreams [Unknown]
  - Thyroid cancer [Unknown]
  - Internal hernia [Unknown]
  - Peritonitis [Unknown]
  - Breast cancer [Unknown]
  - Headache [Unknown]
  - Rash generalised [Unknown]

NARRATIVE: CASE EVENT DATE: 201903
